FAERS Safety Report 7006583-X (Version None)
Quarter: 2010Q3

REPORT INFORMATION
  Report Type: 
  Country: None (occurrence: None)
  Receive Date: 20100921
  Receipt Date: 20100921
  Transmission Date: 20110219
  Serious: Yes (Death)
  Sender: FDA-Public Use
  Company Number: None

PATIENT
  Sex: Male
  Weight: 117.9352 kg

DRUGS (1)
  1. GOLIMUMAB 50 MG J+J/CENTOCOR [Suspect]
     Indication: PSORIATIC ARTHROPATHY
     Dosage: 50 MG ONCE MONTHLY SQ
     Route: 058
     Dates: start: 20100603, end: 20100905

REACTIONS (8)
  - BLOOD PRESSURE INADEQUATELY CONTROLLED [None]
  - CONTINUOUS HAEMODIAFILTRATION [None]
  - GROIN PAIN [None]
  - MULTI-ORGAN FAILURE [None]
  - NO THERAPEUTIC RESPONSE [None]
  - SEPTIC SHOCK [None]
  - STAPHYLOCOCCAL SEPSIS [None]
  - THERAPEUTIC AGENT TOXICITY [None]
